FAERS Safety Report 12514496 (Version 1)
Quarter: 2016Q2

REPORT INFORMATION
  Report Type: Spontaneous
  Country: US (occurrence: None)
  Receive Date: 20160629
  Receipt Date: 20160629
  Transmission Date: 20160815
  Serious: No
  Sender: FDA-Public Use
  Company Number: None

PATIENT
  Age: 67 Year
  Sex: Male

DRUGS (6)
  1. QUETIAPINE 50MG [Concomitant]
     Active Substance: QUETIAPINE
  2. DIVALPROEX [Suspect]
     Active Substance: DIVALPROEX SODIUM
     Indication: DEMENTIA
     Route: 048
     Dates: start: 20151203, end: 20151214
  3. CITALOPRAM [Concomitant]
     Active Substance: CITALOPRAM HYDROBROMIDE
  4. ACETAMINOPHEN 650MG [Concomitant]
  5. MIRTAZAPINE 15MG [Concomitant]
     Active Substance: MIRTAZAPINE
  6. AUGMENTIN [Concomitant]
     Active Substance: AMOXICILLIN\CLAVULANATE POTASSIUM

REACTIONS (5)
  - Fall [None]
  - Condition aggravated [None]
  - Agitation [None]
  - Dementia [None]
  - Therapy change [None]

NARRATIVE: CASE EVENT DATE: 20151213
